FAERS Safety Report 9776299 (Version 1)
Quarter: 2013Q4

REPORT INFORMATION
  Report Type: Spontaneous
  Country: IT (occurrence: FR)
  Receive Date: 20131220
  Receipt Date: 20131220
  Transmission Date: 20140711
  Serious: Yes (Other)
  Sender: FDA-Public Use
  Company Number: FR-FRI-1000052405

PATIENT
  Sex: Female

DRUGS (1)
  1. FOSFOMYCIN [Suspect]
     Indication: CYSTITIS
     Dosage: 1 DF
     Route: 048

REACTIONS (4)
  - Syncope [Unknown]
  - Dyspnoea [Unknown]
  - Dizziness [Unknown]
  - Nausea [Unknown]
